FAERS Safety Report 18836544 (Version 1)
Quarter: 2021Q1

REPORT INFORMATION
  Report Type: Spontaneous
  Country: US (occurrence: US)
  Receive Date: 20210203
  Receipt Date: 20210203
  Transmission Date: 20210419
  Serious: No
  Sender: FDA-Public Use
  Company Number: US-ALLERGAN-2010140US

PATIENT
  Sex: Female

DRUGS (7)
  1. DITROPAN [Suspect]
     Active Substance: OXYBUTYNIN CHLORIDE
     Indication: URINARY INCONTINENCE
  2. BOTOX [Suspect]
     Active Substance: ONABOTULINUMTOXINA
     Indication: ANAL INCONTINENCE
     Dosage: UNK, SINGLE
  3. IBRUTINIB [Suspect]
     Active Substance: IBRUTINIB
     Indication: CHRONIC LYMPHOCYTIC LEUKAEMIA
     Dosage: 420 MG, QD
     Dates: start: 20181009
  4. DITROPAN [Suspect]
     Active Substance: OXYBUTYNIN CHLORIDE
     Indication: ANAL INCONTINENCE
  5. BOTOX [Suspect]
     Active Substance: ONABOTULINUMTOXINA
     Indication: URINARY INCONTINENCE
  6. BOTOX [Suspect]
     Active Substance: ONABOTULINUMTOXINA
     Indication: DIARRHOEA
  7. IBRUTINIB [Suspect]
     Active Substance: IBRUTINIB
     Dosage: 420 MG, QD
     Dates: start: 20180810

REACTIONS (7)
  - Off label use [Unknown]
  - Urinary incontinence [Unknown]
  - Diarrhoea [Unknown]
  - Cystitis [Unknown]
  - Pain [Unknown]
  - Micturition urgency [Unknown]
  - Anal incontinence [Unknown]
